FAERS Safety Report 8239413-9 (Version None)
Quarter: 2012Q1

REPORT INFORMATION
  Report Type: 
  Country: None (occurrence: None)
  Receive Date: 20120328
  Receipt Date: 20120319
  Transmission Date: 20120608
  Serious: Yes (Other)
  Sender: FDA-Public Use
  Company Number: US-BAYER-2011-116852

PATIENT
  Age: 25 Year
  Sex: Female
  Weight: 70.295 kg

DRUGS (12)
  1. YAZ [Suspect]
     Dosage: UNK
     Dates: start: 20020101, end: 20070101
  2. MICROGESTIN FE 1.5/30 [Concomitant]
     Dosage: 1.5-30MG-MCG UNK
     Route: 048
     Dates: start: 20091223
  3. DROSPIRENONE AND ETHINYL ESTRADIOL [Suspect]
     Dosage: UNK
     Dates: start: 20020101, end: 20070101
  4. PREDNISONE TAB [Concomitant]
     Dosage: 1 MG, UNK
     Route: 048
     Dates: start: 20091228
  5. PREDNISONE TAB [Concomitant]
     Dosage: 5 MG, UNK
     Route: 048
     Dates: start: 20091016, end: 20091210
  6. PREDNISONE TAB [Concomitant]
     Dosage: UNK
     Dates: start: 20070101
  7. YASMIN [Suspect]
     Dosage: UNK
     Dates: start: 20020101, end: 20070101
  8. FOLIC ACID [Concomitant]
     Dosage: 1 MG, UNK
     Route: 048
     Dates: start: 20090930, end: 20091210
  9. XOPENEX [Concomitant]
     Dosage: 45 MCG/ACT
     Route: 045
     Dates: start: 20100111
  10. PREDNISONE TAB [Concomitant]
     Indication: RHEUMATOID ARTHRITIS
     Dosage: 10 MG, UNK
     Route: 048
     Dates: start: 20091016
  11. ISONIAZID TAB [Concomitant]
     Dosage: 300 MG, UNK
     Route: 048
     Dates: start: 20090930, end: 20091210
  12. METHOTREXATE SODIUM [Concomitant]
     Dosage: 2.5 MG, UNK
     Route: 048
     Dates: start: 20090930, end: 20091228

REACTIONS (2)
  - PAIN [None]
  - GALLBLADDER NON-FUNCTIONING [None]
